FAERS Safety Report 7851102 (Version 3)
Quarter: 2016Q1

REPORT INFORMATION
  Report Type: Spontaneous
  Country: GB (occurrence: GB)
  Receive Date: 20110310
  Receipt Date: 20160322
  Transmission Date: 20160526
  Serious: Yes (Disabling)
  Sender: FDA-Public Use
  Company Number: GB-BAXTER-2011BH005682

PATIENT
  Age: 46 Year
  Sex: Female
  Weight: 83.1 kg

DRUGS (27)
  1. SODIUM CHLORIDE 0.9% INTRAVENOUS INFUSION BP [Suspect]
     Active Substance: SODIUM CHLORIDE
     Dosage: ONCE
     Route: 040
     Dates: start: 20110120, end: 20110120
  2. PACLITAXEL. [Suspect]
     Active Substance: PACLITAXEL
     Dosage: ONCE
     Route: 040
     Dates: start: 20110202, end: 20110202
  3. SODIUM CHLORIDE 0.9% INTRAVENOUS INFUSION BP [Suspect]
     Active Substance: SODIUM CHLORIDE
     Indication: MEDICATION DILUTION
     Dosage: ONCE
     Route: 040
     Dates: start: 20101208, end: 20101208
  4. SODIUM CHLORIDE 0.9% INTRAVENOUS INFUSION BP [Suspect]
     Active Substance: SODIUM CHLORIDE
     Dosage: ONCE
     Route: 040
     Dates: start: 20101222, end: 20101222
  5. SODIUM CHLORIDE 0.9% INTRAVENOUS INFUSION BP [Suspect]
     Active Substance: SODIUM CHLORIDE
     Dosage: ONCE
     Route: 040
     Dates: start: 20110105, end: 20110105
  6. SODIUM CHLORIDE 0.9% INTRAVENOUS INFUSION BP [Suspect]
     Active Substance: SODIUM CHLORIDE
     Dosage: ONCE
     Route: 040
     Dates: start: 20110119, end: 20110119
  7. PACLITAXEL. [Suspect]
     Active Substance: PACLITAXEL
     Dosage: ONCE
     Route: 040
     Dates: start: 20110120, end: 20110120
  8. SODIUM CHLORIDE 0.9% INTRAVENOUS INFUSION BP [Suspect]
     Active Substance: SODIUM CHLORIDE
     Dosage: ONCE
     Route: 040
     Dates: start: 20110223, end: 20110223
  9. SODIUM CHLORIDE 0.9% INTRAVENOUS INFUSION BP [Suspect]
     Active Substance: SODIUM CHLORIDE
     Dosage: 250 ML, ONCE
     Route: 040
  10. PACLITAXEL. [Suspect]
     Active Substance: PACLITAXEL
     Indication: BREAST CANCER
     Dosage: ONCE
     Route: 040
     Dates: start: 20101208, end: 20101208
  11. PACLITAXEL. [Suspect]
     Active Substance: PACLITAXEL
     Dosage: ONCE
     Route: 040
     Dates: start: 20101222, end: 20101222
  12. PACLITAXEL. [Suspect]
     Active Substance: PACLITAXEL
     Dosage: ONCE
     Route: 040
     Dates: start: 20101229, end: 20101229
  13. PACLITAXEL. [Suspect]
     Active Substance: PACLITAXEL
     Dosage: ONCE
     Route: 040
     Dates: start: 20110112, end: 20110112
  14. PACLITAXEL. [Suspect]
     Active Substance: PACLITAXEL
     Dosage: ONCE
     Route: 040
     Dates: start: 20110119, end: 20110119
  15. DEXAMETHASONE. [Suspect]
     Active Substance: DEXAMETHASONE
     Indication: PRODUCT USED FOR UNKNOWN INDICATION
     Route: 040
     Dates: start: 20101208
  16. SODIUM CHLORIDE 0.9% INTRAVENOUS INFUSION BP [Suspect]
     Active Substance: SODIUM CHLORIDE
     Indication: PRODUCT USED FOR UNKNOWN INDICATION
     Dosage: ONCE
     Route: 040
     Dates: start: 20101215, end: 20101215
  17. SODIUM CHLORIDE 0.9% INTRAVENOUS INFUSION BP [Suspect]
     Active Substance: SODIUM CHLORIDE
     Dosage: ONCE
     Route: 040
     Dates: start: 20110215, end: 20110215
  18. SODIUM CHLORIDE 0.9% INTRAVENOUS INFUSION BP [Suspect]
     Active Substance: SODIUM CHLORIDE
     Dosage: ONCE
     Route: 040
     Dates: start: 20101208
  19. CHLORPHENIRAMINE MALEATE. [Suspect]
     Active Substance: CHLORPHENIRAMINE MALEATE
     Indication: PRODUCT USED FOR UNKNOWN INDICATION
     Route: 040
     Dates: start: 20101208
  20. PACLITAXEL. [Suspect]
     Active Substance: PACLITAXEL
     Dosage: ONCE
     Route: 040
     Dates: start: 20101215, end: 20101215
  21. PACLITAXEL. [Suspect]
     Active Substance: PACLITAXEL
     Dosage: ONCE
     Route: 040
     Dates: start: 20110215, end: 20110215
  22. PACLITAXEL. [Suspect]
     Active Substance: PACLITAXEL
     Dosage: ONCE
     Route: 040
     Dates: start: 20110223, end: 20110223
  23. ALOXI [Suspect]
     Active Substance: PALONOSETRON HYDROCHLORIDE
     Indication: PRODUCT USED FOR UNKNOWN INDICATION
     Route: 040
     Dates: start: 20101208
  24. RANITIDINE [Suspect]
     Active Substance: RANITIDINE\RANITIDINE HYDROCHLORIDE
     Indication: PRODUCT USED FOR UNKNOWN INDICATION
     Route: 040
     Dates: start: 20101208
  25. SODIUM CHLORIDE 0.9% INTRAVENOUS INFUSION BP [Suspect]
     Active Substance: SODIUM CHLORIDE
     Dosage: ONCE
     Route: 040
     Dates: start: 20101229, end: 20101229
  26. SODIUM CHLORIDE 0.9% INTRAVENOUS INFUSION BP [Suspect]
     Active Substance: SODIUM CHLORIDE
     Dosage: ONCE
     Route: 040
     Dates: start: 20110202, end: 20110202
  27. PACLITAXEL. [Suspect]
     Active Substance: PACLITAXEL
     Dosage: ONCE
     Route: 040
     Dates: start: 20110105, end: 20110105

REACTIONS (1)
  - Neuropathy peripheral [Not Recovered/Not Resolved]

NARRATIVE: CASE EVENT DATE: 201102
